FAERS Safety Report 7957006-5 (Version None)
Quarter: 2011Q4

REPORT INFORMATION
  Report Type: 
  Country: None (occurrence: None)
  Receive Date: 20111205
  Receipt Date: 20111205
  Transmission Date: 20120403
  Serious: Yes (Other)
  Sender: FDA-Public Use
  Company Number: None

PATIENT
  Sex: Female
  Weight: 70.306 kg

DRUGS (1)
  1. ACTONEL [Suspect]
     Indication: OSTEOPENIA
     Dosage: 1 TABLET
     Route: 048
     Dates: start: 20111109, end: 20111209

REACTIONS (5)
  - IMPAIRED WORK ABILITY [None]
  - VOMITING [None]
  - DIARRHOEA [None]
  - IRRITABLE BOWEL SYNDROME [None]
  - DEHYDRATION [None]
